FAERS Safety Report 7062374-5 (Version None)
Quarter: 2010Q4

REPORT INFORMATION
  Report Type: 
  Country: None (occurrence: None)
  Receive Date: 20101026
  Receipt Date: 20101022
  Transmission Date: 20110411
  Serious: Yes (Death)
  Sender: FDA-Public Use
  Company Number: PHHY2010BR71300

PATIENT
  Sex: Female

DRUGS (3)
  1. ACLASTA [Suspect]
     Dosage: 5MG/100ML
  2. BEROTEC [Concomitant]
  3. CIVOFOFIR [Concomitant]

REACTIONS (1)
  - DEATH [None]
